FAERS Safety Report 17055504 (Version 1)
Quarter: 2019Q4

REPORT INFORMATION
  Report Type: Spontaneous
  Country: ES (occurrence: ES)
  Receive Date: 20191120
  Receipt Date: 20191120
  Transmission Date: 20200122
  Serious: Yes (Hospitalization)
  Sender: FDA-Public Use
  Company Number: ES-BAUSCH-BL-2019-061778

PATIENT
  Age: 61 Year
  Sex: Male

DRUGS (2)
  1. DEXAMETASONA [Suspect]
     Active Substance: DEXAMETHASONE
     Indication: PRODUCT USED FOR UNKNOWN INDICATION
     Route: 065
     Dates: start: 20190905
  2. DEXAMETASONA [Suspect]
     Active Substance: DEXAMETHASONE
     Dosage: REDUCED DOSE
     Route: 065

REACTIONS (1)
  - Diabetic metabolic decompensation [Recovered/Resolved]

NARRATIVE: CASE EVENT DATE: 20190823
